FAERS Safety Report 9449093 (Version 1)
Quarter: 2013Q3

REPORT INFORMATION
  Report Type: Spontaneous
  Country: US (occurrence: US)
  Receive Date: 20130808
  Receipt Date: 20130808
  Transmission Date: 20140515
  Serious: Yes (Other)
  Sender: FDA-Public Use
  Company Number: US-ACTAVIS-2013-13629

PATIENT
  Age: 63 Year
  Sex: Female

DRUGS (1)
  1. SULFAMETHOXAZOLE-TRIMETHOPRIM (WATSON LABORATORIES) [Suspect]
     Indication: NOCARDIOSIS
     Dosage: UNK
     Route: 065

REACTIONS (1)
  - Myoclonus [Recovered/Resolved]
